FAERS Safety Report 10217624 (Version 1)
Quarter: 2014Q2

REPORT INFORMATION
  Report Type: Spontaneous
  Country: NO (occurrence: NO)
  Receive Date: 20140604
  Receipt Date: 20140604
  Transmission Date: 20141212
  Serious: Yes (Disabling)
  Sender: FDA-Public Use
  Company Number: NO-BAXTER-2014BAX027102

PATIENT
  Age: 23 Year
  Sex: Male

DRUGS (18)
  1. SENDOXAN 1000 MG PULVER TIL INJEKSJONSV?SKE, OPPL?SNING [Suspect]
     Indication: T-CELL TYPE ACUTE LEUKAEMIA
     Dosage: ACCORDING TO THE NOPHO-ALL 2000 PROTOCOL
     Route: 042
     Dates: start: 20070613, end: 20070711
  2. L-ASPARAGINASE [Suspect]
     Indication: T-CELL TYPE ACUTE LEUKAEMIA
     Dosage: ACCORDING TO THE NOPHO-ALL 2000 PROTOCOL
     Route: 030
     Dates: start: 20070531, end: 20071031
  3. METHOTREXATE SODIUM [Suspect]
     Indication: T-CELL TYPE ACUTE LEUKAEMIA
     Dosage: ACCORDING TO NOPHO-ALL 2000 PROTOCOL
     Route: 065
     Dates: start: 20070425, end: 2009
  4. METHOTREXATE SODIUM [Suspect]
     Indication: PANCYTOPENIA
  5. PREDNISOLON [Suspect]
     Indication: T-CELL TYPE ACUTE LEUKAEMIA
     Route: 065
     Dates: start: 20070420, end: 20070424
  6. PREDNISOLON [Suspect]
     Dosage: 65 MG + 50 MG CONT. FOR SIX WEEKS
     Route: 065
     Dates: start: 20070425
  7. DEXAMETHASONE [Suspect]
     Indication: T-CELL TYPE ACUTE LEUKAEMIA
     Dosage: ACCORDING TO THE NOPHO-ALL 2000 PROTOCOL
     Route: 048
     Dates: start: 20071031, end: 2009
  8. VINCRISTINE [Suspect]
     Indication: T-CELL TYPE ACUTE LEUKAEMIA
     Dosage: (DAY 47 OF FIRST LSA2L2 CYCLE)
     Route: 042
     Dates: start: 20080713, end: 20080713
  9. CARMUSTINE [Suspect]
     Indication: T-CELL TYPE ACUTE LEUKAEMIA
     Dosage: ACCORDING TO THE NOPHO-ALL 2000 PROTOCOL
     Route: 065
     Dates: start: 20080630, end: 20080825
  10. LANVIS [Suspect]
     Indication: T-CELL TYPE ACUTE LEUKAEMIA
     Dosage: ACCORDING TO THE NOPHO-ALL 2000 PROTOCOL
     Route: 048
     Dates: start: 20070613, end: 20080723
  11. PURINETHOL [Suspect]
     Indication: T-CELL TYPE ACUTE LEUKAEMIA
     Dosage: DAY 1-45 OF THE NOPHO-ALL 2000 PROTOCOL
     Route: 065
     Dates: start: 20080213
  12. PURINETHOL [Suspect]
     Indication: PANCYTOPENIA
     Route: 065
     Dates: start: 20080924, end: 2009
  13. HYDROXYUREA [Suspect]
     Indication: T-CELL TYPE ACUTE LEUKAEMIA
     Dosage: FROM DAY 15-18 OF FIRST LSA2L2 CYCLE IN NOPHO-ALL PROTOCOL
     Route: 065
     Dates: start: 20080611, end: 20080614
  14. ONCOVIN [Suspect]
     Indication: T-CELL TYPE ACUTE LEUKAEMIA
     Dosage: ACCORDING TO THE NOPHO-ALL 2000 PROTOCOL
     Route: 042
     Dates: start: 20070425, end: 2009
  15. DOXORUBICIN HCL [Suspect]
     Indication: T-CELL TYPE ACUTE LEUKAEMIA
     Dosage: ACCORDING TO NOPHO-ALL 2000 PROTOCOL
     Route: 042
     Dates: start: 20070425, end: 20071114
  16. CYTARABINE [Suspect]
     Indication: T-CELL TYPE ACUTE LEUKAEMIA
     Dosage: ACCORDING TO THE NOPHO-ALL 2000 PROTOCOL
     Route: 042
     Dates: start: 20070615, end: 20071214
  17. DAUNORUBICIN [Suspect]
     Indication: T-CELL TYPE ACUTE LEUKAEMIA
     Dosage: ACCORDING TO THE NOPHO-ALL 2000 PROTOCOL
     Route: 042
     Dates: start: 20080616, end: 20080811
  18. CYTOSAR [Suspect]
     Indication: T-CELL TYPE ACUTE LEUKAEMIA
     Dosage: ACCORDING TO THE NOPHO-ALL 2000 PROTOCOL
     Route: 042
     Dates: start: 20070713, end: 20080903

REACTIONS (2)
  - Osteonecrosis [Not Recovered/Not Resolved]
  - Deafness bilateral [Not Recovered/Not Resolved]
